FAERS Safety Report 10414051 (Version 1)
Quarter: 2014Q3

REPORT INFORMATION
  Report Type: Spontaneous
  Country: US (occurrence: None)
  Receive Date: 20140826
  Receipt Date: 20140826
  Transmission Date: 20150326
  Serious: Yes (Death, Hospitalization, Other)
  Sender: FDA-Public Use
  Company Number: SXC-2014-000513

PATIENT
  Age: 75 Year
  Sex: Female

DRUGS (2)
  1. SUCRALFATE. [Suspect]
     Active Substance: SUCRALFATE
     Indication: PRODUCT USED FOR UNKNOWN INDICATION
  2. ESOMEPRAZOLE (ESOMEPRAZOLE) [Concomitant]
     Active Substance: ESOMEPRAZOLE

REACTIONS (10)
  - Cerebral haemorrhage [None]
  - Candida infection [None]
  - Enterococcus test positive [None]
  - Oesophageal fistula [None]
  - Streptococcus test positive [None]
  - Cerebral infarction [None]
  - Blood culture positive [None]
  - Escherichia test positive [None]
  - Oesophageal perforation [None]
  - Cerebellar infarction [None]
